FAERS Safety Report 14388959 (Version 2)
Quarter: 2018Q3

REPORT INFORMATION
  Report Type: Spontaneous
  Country: US (occurrence: US)
  Receive Date: 20180115
  Receipt Date: 20180709
  Transmission Date: 20181010
  Serious: Yes (Other)
  Sender: FDA-Public Use
  Company Number: US-SA-2017SA231044

PATIENT
  Age: 58 Year
  Sex: Female

DRUGS (14)
  1. TAXOTERE [Suspect]
     Active Substance: DOCETAXEL
     Indication: BREAST CANCER FEMALE
     Dosage: 188 MG, QCY
     Route: 042
     Dates: start: 20121113, end: 20121113
  2. AMBIEN [Concomitant]
     Active Substance: ZOLPIDEM TARTRATE
     Dosage: 5 MG,HS
     Route: 065
     Dates: start: 20131205
  3. HYDROXYZINE [Concomitant]
     Active Substance: HYDROXYZINE HYDROCHLORIDE
     Dosage: 25 MG,UNK
     Route: 048
     Dates: start: 20131017
  4. ACETYLSALICYLIC ACID [Concomitant]
     Active Substance: ASPIRIN
     Dosage: 81 MG,UNK
     Route: 048
     Dates: start: 20131017
  5. PROAIR HFA [Concomitant]
     Active Substance: ALBUTEROL SULFATE
     Dosage: UNK UNK,UNK
     Route: 065
     Dates: start: 20131017
  6. PARAPLATIN [Concomitant]
     Active Substance: CARBOPLATIN
  7. ALBUTEROL SULFATE. [Concomitant]
     Active Substance: ALBUTEROL SULFATE
     Dosage: UNK UNK,UNK
     Route: 065
     Dates: start: 20131017
  8. LIPITOR [Concomitant]
     Active Substance: ATORVASTATIN CALCIUM
     Dosage: 40 MG,UNK
     Route: 048
     Dates: start: 20140811
  9. NYSTATIN. [Concomitant]
     Active Substance: NYSTATIN
     Dosage: UNK UNK,UNK
     Route: 065
     Dates: start: 20131017
  10. FUROSEMIDE. [Concomitant]
     Active Substance: FUROSEMIDE
     Dosage: 40 MG,UNK
     Route: 048
     Dates: start: 20131017
  11. LOSARTAN POTASSIUM. [Concomitant]
     Active Substance: LOSARTAN POTASSIUM
     Dosage: 100 MG,UNK
     Route: 048
     Dates: start: 20131017
  12. TAXOTERE [Suspect]
     Active Substance: DOCETAXEL
     Dosage: 188 MG, QCY
     Route: 042
     Dates: start: 20130226, end: 20130226
  13. METFORMIN HYDROCHLORIDE. [Concomitant]
     Active Substance: METFORMIN HYDROCHLORIDE
     Dosage: 500 MG,UNK
     Route: 048
     Dates: start: 20131017
  14. HERCEPTIN [Concomitant]
     Active Substance: TRASTUZUMAB

REACTIONS (6)
  - Anxiety [Unknown]
  - Pain [Unknown]
  - Alopecia [Not Recovered/Not Resolved]
  - Emotional distress [Unknown]
  - Psychological trauma [Unknown]
  - Impaired quality of life [Unknown]

NARRATIVE: CASE EVENT DATE: 201301
